FAERS Safety Report 9174546 (Version 1)
Quarter: 2013Q1

REPORT INFORMATION
  Report Type: Spontaneous
  Country: US (occurrence: US)
  Receive Date: 20130320
  Receipt Date: 20130320
  Transmission Date: 20140127
  Serious: No
  Sender: FDA-Public Use
  Company Number: US-MYLANLABS-2012S1020648

PATIENT
  Age: 86 Year
  Sex: Female

DRUGS (7)
  1. ESTRADIOL TRANSDERMAL SYSTEM, USP [Suspect]
     Indication: HORMONE REPLACEMENT THERAPY
     Dosage: CHANGE WEEKLY
     Route: 062
     Dates: start: 201203
  2. CYMBALTA [Concomitant]
     Indication: FIBROMYALGIA
  3. LOTENSIN [Concomitant]
     Indication: BLOOD PRESSURE INCREASED
  4. NEXIUM [Concomitant]
     Indication: ULCER
  5. HYDROCODONE [Concomitant]
     Indication: PAIN
  6. AMITRIPTYLINE [Concomitant]
     Indication: RESTLESSNESS
  7. ASA [Concomitant]

REACTIONS (3)
  - Application site discolouration [Not Recovered/Not Resolved]
  - Night sweats [Not Recovered/Not Resolved]
  - Alopecia [Not Recovered/Not Resolved]
